FAERS Safety Report 25347789 (Version 2)
Quarter: 2025Q3

REPORT INFORMATION
  Report Type: Spontaneous
  Country: JP (occurrence: JP)
  Receive Date: 20250522
  Receipt Date: 20250803
  Transmission Date: 20251021
  Serious: Yes (Hospitalization)
  Sender: ALEXION PHARMACEUTICALS
  Company Number: JP-ASTRAZENECA-250036879_071610_P_1

PATIENT
  Age: 7 Month
  Sex: Male

DRUGS (4)
  1. BEYFORTUS [Suspect]
     Active Substance: NIRSEVIMAB-ALIP
     Indication: Antiviral prophylaxis
  2. HERBAL NOS [Concomitant]
     Active Substance: HERBALS
     Route: 065
  3. TU-100 [Concomitant]
     Active Substance: ASIAN GINSENG\GINGER\ZANTHOXYLUM PIPERITUM FRUIT PULP
     Route: 065
  4. FUROSEMIDE [Concomitant]
     Active Substance: FUROSEMIDE
     Route: 065

REACTIONS (1)
  - Pyrexia [Recovering/Resolving]

NARRATIVE: CASE EVENT DATE: 20250407
